FAERS Safety Report 24420690 (Version 2)
Quarter: 2024Q4

REPORT INFORMATION
  Report Type: Report from Study
  Country: US (occurrence: US)
  Receive Date: 20241010
  Receipt Date: 20241018
  Transmission Date: 20250115
  Serious: No
  Sender: ROCHE
  Company Number: US-ROCHE-3560122

PATIENT
  Age: 62 Year
  Sex: Male

DRUGS (3)
  1. ACTIVASE [Suspect]
     Active Substance: ALTEPLASE
     Indication: Device related thrombosis
     Dosage: 23/APR/2024: 100 MG
     Route: 065
  2. ACTIVASE [Suspect]
     Active Substance: ALTEPLASE
     Indication: Thrombosis in device
  3. ACTIVASE [Suspect]
     Active Substance: ALTEPLASE
     Indication: Graft thrombosis

REACTIONS (2)
  - Off label use [Unknown]
  - No adverse event [Unknown]
